FAERS Safety Report 10467402 (Version 3)
Quarter: 2015Q1

REPORT INFORMATION
  Report Type: Spontaneous
  Country: US (occurrence: US)
  Receive Date: 20140922
  Receipt Date: 20150327
  Transmission Date: 20150720
  Serious: Yes (Death, Hospitalization, Other)
  Sender: FDA-Public Use
  Company Number: US-009507513-1409USA009867

PATIENT
  Sex: Male

DRUGS (2)
  1. JANUVIA [Suspect]
     Active Substance: SITAGLIPTIN PHOSPHATE
     Indication: TYPE 2 DIABETES MELLITUS
     Dosage: 100 MG, QD
     Route: 048
     Dates: start: 20080822, end: 20111107
  2. BYETTA [Suspect]
     Active Substance: EXENATIDE
     Indication: TYPE 2 DIABETES MELLITUS
     Dosage: 10 MICROGRAM, BID
     Dates: start: 20070111, end: 20080822

REACTIONS (30)
  - Diabetes mellitus inadequate control [Unknown]
  - Tachycardia [Unknown]
  - Metastases to adrenals [Unknown]
  - Urinary tract infection [Unknown]
  - Erectile dysfunction [Unknown]
  - Metastases to pelvis [Unknown]
  - Bladder adenocarcinoma stage unspecified [Unknown]
  - Metastases to liver [Unknown]
  - Metastases to abdominal cavity [Unknown]
  - Eczema [Unknown]
  - Gastrooesophageal reflux disease [Unknown]
  - Dysuria [Unknown]
  - Pancreatic carcinoma metastatic [Fatal]
  - Encephalopathy [Fatal]
  - Small intestine carcinoma metastatic [Unknown]
  - Urosepsis [Unknown]
  - Hyponatraemia [Recovered/Resolved]
  - Actinic keratosis [Unknown]
  - Calculus bladder [Unknown]
  - Cataract operation [Unknown]
  - Cerebrovascular accident [Unknown]
  - Benign prostatic hyperplasia [Unknown]
  - Dermatitis [Unknown]
  - Metastases to spleen [Unknown]
  - Metastases to stomach [Unknown]
  - Cerebral infarction [Not Recovered/Not Resolved]
  - Weight increased [Unknown]
  - Treatment noncompliance [Unknown]
  - Hyperglycaemia [Unknown]
  - Feeding disorder [Unknown]

NARRATIVE: CASE EVENT DATE: 2008
